FAERS Safety Report 7013638-2 (Version None)
Quarter: 2010Q3

REPORT INFORMATION
  Report Type: 
  Country: None (occurrence: None)
  Receive Date: 20100924
  Receipt Date: 20100914
  Transmission Date: 20110219
  Serious: Yes (Hospitalization, Other)
  Sender: FDA-Public Use
  Company Number: US-PFIZER INC-2010116335

PATIENT
  Sex: Female
  Weight: 58.957 kg

DRUGS (4)
  1. LYRICA [Suspect]
     Indication: NEUROPATHY PERIPHERAL
     Dosage: 150 MG, 3X/DAY
     Route: 048
     Dates: start: 20090101
  2. NEURONTIN [Suspect]
     Indication: NEUROPATHY PERIPHERAL
     Dosage: 600 MG, 3X/DAY
     Route: 048
     Dates: start: 20090101
  3. EFFEXOR [Concomitant]
     Indication: NEUROPATHY PERIPHERAL
     Dosage: 37.5 MG, 2X/DAY
     Route: 048
     Dates: start: 20100101
  4. METOPROLOL [Concomitant]
     Dosage: 25 MG, 4X/DAY
     Dates: start: 20100101, end: 20100101

REACTIONS (2)
  - HYPERTENSION [None]
  - LOWER LIMB FRACTURE [None]
